FAERS Safety Report 4890837-7 (Version None)
Quarter: 2006Q1

REPORT INFORMATION
  Report Type: 
  Country: None (occurrence: None)
  Receive Date: 20060125
  Receipt Date: 20050727
  Transmission Date: 20060701
  Serious: Yes (Hospitalization)
  Sender: FDA-Public Use
  Company Number: BE-BRISTOL-MYERS SQUIBB COMPANY-13053335

PATIENT
  Age: 18 Year
  Sex: Male
  Weight: 82 kg

DRUGS (5)
  1. BLEOMYCIN [Suspect]
     Indication: GERM CELL CANCER
     Dates: start: 20050622, end: 20050719
  2. CISPLATIN [Suspect]
     Indication: GERM CELL CANCER
     Dates: start: 20050621, end: 20050716
  3. ETOPOSIDE [Suspect]
     Indication: GERM CELL CANCER
     Dates: start: 20050621, end: 20050716
  4. FILGRASTIM [Concomitant]
     Dates: start: 20050717, end: 20050719
  5. FLUCONAZOLE [Concomitant]
     Dates: start: 20050712, end: 20050805

REACTIONS (3)
  - INFECTION [None]
  - LEUKOPENIA [None]
  - PYREXIA [None]
